FAERS Safety Report 4382435-9 (Version None)
Quarter: 2004Q2

REPORT INFORMATION
  Report Type: 
  Country: None (occurrence: None)
  Receive Date: 20040621
  Receipt Date: 20040616
  Transmission Date: 20050107
  Serious: Yes (Life-Threatening, Hospitalization)
  Sender: FDA-Public Use
  Company Number: 2004040430

PATIENT
  Sex: Female

DRUGS (1)
  1. VISINE (OXYMETAZOLINE) [Suspect]
     Indication: ACCIDENTAL EXPOSURE
     Dosage: 5 ML ONCE, ORAL
     Route: 048
     Dates: start: 20040601, end: 20040601

REACTIONS (4)
  - ACCIDENTAL EXPOSURE [None]
  - CARDIO-RESPIRATORY ARREST [None]
  - HEART RATE DECREASED [None]
  - RESPIRATORY RATE DECREASED [None]
